FAERS Safety Report 12523047 (Version 2)
Quarter: 2016Q3

REPORT INFORMATION
  Report Type: Spontaneous
  Country: JP (occurrence: JP)
  Receive Date: 20160701
  Receipt Date: 20160805
  Transmission Date: 20161109
  Serious: Yes (Hospitalization)
  Sender: FDA-Public Use
  Company Number: PHHY2015JP127154

PATIENT
  Age: 73 Year
  Sex: Female

DRUGS (3)
  1. VOTRIENT [Suspect]
     Active Substance: PAZOPANIB HYDROCHLORIDE
     Indication: SARCOMA UTERUS
     Dosage: 800 MG, QD
     Route: 048
     Dates: start: 20141027, end: 201503
  2. VOTRIENT [Suspect]
     Active Substance: PAZOPANIB HYDROCHLORIDE
     Dosage: 600 MG, QD
     Route: 048
     Dates: start: 201503, end: 201503
  3. VOTRIENT [Suspect]
     Active Substance: PAZOPANIB HYDROCHLORIDE
     Dosage: 400 MG, QD
     Route: 048
     Dates: start: 201503, end: 201503

REACTIONS (5)
  - Hepatic function abnormal [Recovered/Resolved]
  - Oedema peripheral [Recovered/Resolved]
  - Hypertension [Recovering/Resolving]
  - Rectal perforation [Recovered/Resolved]
  - Protein urine present [Recovered/Resolved]

NARRATIVE: CASE EVENT DATE: 201503
